FAERS Safety Report 8593384-4 (Version None)
Quarter: 2012Q3

REPORT INFORMATION
  Report Type: 
  Country: None (occurrence: None)
  Receive Date: 20120814
  Receipt Date: 20120810
  Transmission Date: 20120928
  Serious: Yes (Other)
  Sender: FDA-Public Use
  Company Number: PHHY2012BR049679

PATIENT
  Sex: Female

DRUGS (1)
  1. ONBREZ [Suspect]
     Indication: BRONCHITIS CHRONIC
     Dates: start: 20120101

REACTIONS (3)
  - HYPERSENSITIVITY [None]
  - SWELLING [None]
  - GENERALISED ERYTHEMA [None]
